FAERS Safety Report 17718907 (Version 40)
Quarter: 2025Q2

REPORT INFORMATION
  Report Type: Report from Study
  Country: US (occurrence: US)
  Receive Date: 20200428
  Receipt Date: 20250626
  Transmission Date: 20250717
  Serious: Yes (Hospitalization, Other)
  Sender: TAKEDA
  Company Number: US-SHIRE-US202014621

PATIENT
  Age: 78 Year
  Sex: Female
  Weight: 40 kg

DRUGS (63)
  1. HUMAN IMMUNOGLOBULIN G [Suspect]
     Active Substance: HUMAN IMMUNOGLOBULIN G
     Indication: Immunodeficiency common variable
     Dosage: 40 GRAM, Q4WEEKS
  2. HUMAN IMMUNOGLOBULIN G [Suspect]
     Active Substance: HUMAN IMMUNOGLOBULIN G
     Dosage: 40 GRAM, Q4WEEKS
     Dates: start: 20180726
  3. HUMAN IMMUNOGLOBULIN G [Suspect]
     Active Substance: HUMAN IMMUNOGLOBULIN G
     Dosage: 40 GRAM, Q4WEEKS
     Dates: start: 20180803
  4. HUMAN IMMUNOGLOBULIN G [Suspect]
     Active Substance: HUMAN IMMUNOGLOBULIN G
     Dosage: 28 GRAM, Q4WEEKS
  5. HUMAN IMMUNOGLOBULIN G [Suspect]
     Active Substance: HUMAN IMMUNOGLOBULIN G
     Dosage: 12.5 GRAM, 1/WEEK
  6. HUMAN IMMUNOGLOBULIN G [Suspect]
     Active Substance: HUMAN IMMUNOGLOBULIN G
     Dosage: 28 GRAM, 1/WEEK
  7. HUMAN IMMUNOGLOBULIN G [Suspect]
     Active Substance: HUMAN IMMUNOGLOBULIN G
     Dosage: 28 GRAM, Q4WEEKS
  8. EPINEPHRINE [Concomitant]
     Active Substance: EPINEPHRINE
  9. ACETAMINOPHEN [Concomitant]
     Active Substance: ACETAMINOPHEN
  10. CLONIDINE [Concomitant]
     Active Substance: CLONIDINE
  11. CRESTOR [Concomitant]
     Active Substance: ROSUVASTATIN CALCIUM
  12. HYDRALAZINE HCL [Concomitant]
     Active Substance: HYDRALAZINE HYDROCHLORIDE
  13. SODIUM CHLORIDE [Concomitant]
     Active Substance: SODIUM CHLORIDE
  14. ULTRAM [Concomitant]
     Active Substance: TRAMADOL HYDROCHLORIDE
  15. BREO ELLIPTA [Concomitant]
     Active Substance: FLUTICASONE FUROATE\VILANTEROL TRIFENATATE
  16. XARELTO [Concomitant]
     Active Substance: RIVAROXABAN
  17. FOLIC ACID [Concomitant]
     Active Substance: FOLIC ACID
  18. MYRBETRIQ [Concomitant]
     Active Substance: MIRABEGRON
  19. SYNTHROID [Concomitant]
     Active Substance: LEVOTHYROXINE SODIUM
  20. TRILEPTAL [Concomitant]
     Active Substance: OXCARBAZEPINE
  21. VITAMIN D [Concomitant]
     Active Substance: VITAMIN D NOS
  22. PANTOPRAZOLE [Concomitant]
     Active Substance: PANTOPRAZOLE
  23. LEVALBUTEROL HYDROCHLORIDE [Concomitant]
     Active Substance: LEVALBUTEROL HYDROCHLORIDE
  24. CLARITIN-D NOS [Concomitant]
     Active Substance: LORATADINE\PSEUDOEPHEDRINE SULFATE
  25. LANTUS [Concomitant]
     Active Substance: INSULIN GLARGINE
  26. FLUTICASONE PROPIONATE [Concomitant]
     Active Substance: FLUTICASONE PROPIONATE
  27. DICLOFENAC [Concomitant]
     Active Substance: DICLOFENAC
  28. AMITRIPTYLINE [Concomitant]
     Active Substance: AMITRIPTYLINE
  29. BECLOMETHASONE DIPROPIONATE [Concomitant]
     Active Substance: BECLOMETHASONE DIPROPIONATE
  30. LIDOCAINE [Concomitant]
     Active Substance: LIDOCAINE
  31. OXYGEN [Concomitant]
     Active Substance: OXYGEN
  32. DIPHENHYDRAMINE HYDROCHLORIDE [Concomitant]
     Active Substance: DIPHENHYDRAMINE HYDROCHLORIDE
  33. XOPENEX [Concomitant]
     Active Substance: LEVALBUTEROL HYDROCHLORIDE
  34. XOPENEX HFA [Concomitant]
     Active Substance: LEVALBUTEROL TARTRATE
  35. PREDNISONE [Concomitant]
     Active Substance: PREDNISONE
  36. COREG [Concomitant]
     Active Substance: CARVEDILOL
  37. BENZONATATE [Concomitant]
     Active Substance: BENZONATATE
  38. VALTREX [Concomitant]
     Active Substance: VALACYCLOVIR HYDROCHLORIDE
  39. MUCINEX [Concomitant]
     Active Substance: GUAIFENESIN
  40. LYRICA [Concomitant]
     Active Substance: PREGABALIN
  41. AZITHROMYCIN [Concomitant]
     Active Substance: AZITHROMYCIN
  42. RESTASIS [Concomitant]
     Active Substance: CYCLOSPORINE
  43. REFRESH PLUS [Concomitant]
     Active Substance: CARBOXYMETHYLCELLULOSE SODIUM
  44. VITAMIN D2 [Concomitant]
     Active Substance: ERGOCALCIFEROL
  45. CYCLOBENZAPRINE [Concomitant]
     Active Substance: CYCLOBENZAPRINE
  46. IBUPROFEN [Concomitant]
     Active Substance: IBUPROFEN
  47. NORVASC [Concomitant]
     Active Substance: AMLODIPINE BESYLATE
  48. JARDIANCE [Concomitant]
     Active Substance: EMPAGLIFLOZIN
  49. METFORMIN [Concomitant]
     Active Substance: METFORMIN HYDROCHLORIDE
  50. FIBERTAB [Concomitant]
     Active Substance: CALCIUM POLYCARBOPHIL
  51. AUGMENTIN [Concomitant]
     Active Substance: AMOXICILLIN\CLAVULANATE POTASSIUM
  52. ARNICA MONTANA FLOWER [Concomitant]
     Active Substance: ARNICA MONTANA FLOWER
  53. NOVOLOG [Concomitant]
     Active Substance: INSULIN ASPART
  54. DIPHEN [Concomitant]
     Active Substance: ACETAMINOPHEN\BACITRACIN ZINC\BENZALKONIUM CHLORIDE\BENZOCAINE\BISMUTH SUBSALICYLATE\CALCIUM CARBONA
  55. MAGNESIUM [Concomitant]
     Active Substance: MAGNESIUM
  56. AMOXICILLIN\CLAVULANIC ACID [Concomitant]
     Active Substance: AMOXICILLIN\CLAVULANIC ACID
     Indication: Diverticulitis
  57. LEVALBUTEROL [Concomitant]
     Active Substance: LEVALBUTEROL
  58. HYDRALAZINE [Concomitant]
     Active Substance: HYDRALAZINE HYDROCHLORIDE
  59. CLONIDINE HYDROCHLORIDE [Concomitant]
     Active Substance: CLONIDINE HYDROCHLORIDE
  60. PANTOPRAZOLE SODIUM [Concomitant]
     Active Substance: PANTOPRAZOLE SODIUM
  61. AMITRIPTYLINE HYDROCHLORIDE [Concomitant]
     Active Substance: AMITRIPTYLINE HYDROCHLORIDE
  62. DICLOFENAC SODIUM [Concomitant]
     Active Substance: DICLOFENAC SODIUM
  63. DIPHENHYDRAMINE [Concomitant]
     Active Substance: DIPHENHYDRAMINE

REACTIONS (58)
  - Cholelithiasis [Unknown]
  - Diverticulitis [Unknown]
  - Autoimmune disorder [Unknown]
  - Chest injury [Unknown]
  - Pulmonary fibrosis [Unknown]
  - Pelvic fracture [Unknown]
  - Generalised tonic-clonic seizure [Unknown]
  - Loss of consciousness [Recovered/Resolved]
  - Swelling [Unknown]
  - Pain [Unknown]
  - Fall [Unknown]
  - Limb discomfort [Unknown]
  - Arthropathy [Unknown]
  - Blood glucose abnormal [Recovered/Resolved]
  - Limb injury [Unknown]
  - Skin laceration [Unknown]
  - Wound haemorrhage [Unknown]
  - Arthritis [Unknown]
  - Mobility decreased [Not Recovered/Not Resolved]
  - Depression [Unknown]
  - Fear of death [Unknown]
  - Crying [Unknown]
  - Weight decreased [Unknown]
  - Ageusia [Unknown]
  - Taste disorder [Unknown]
  - Lymphoedema [Unknown]
  - Head injury [Unknown]
  - Skin discolouration [Unknown]
  - Weight gain poor [Unknown]
  - Hypophagia [Unknown]
  - Hypersomnia [Unknown]
  - Skin abrasion [Unknown]
  - Inappropriate schedule of product administration [Unknown]
  - General physical health deterioration [Unknown]
  - Infection [Not Recovered/Not Resolved]
  - Back injury [Unknown]
  - Nasopharyngitis [Unknown]
  - Walking aid user [Not Recovered/Not Resolved]
  - Memory impairment [Unknown]
  - Disturbance in attention [Unknown]
  - Dyspnoea exertional [Unknown]
  - Illness [Unknown]
  - Haematoma [Unknown]
  - Feeling abnormal [Unknown]
  - Somnolence [Unknown]
  - Rhinorrhoea [Unknown]
  - Balance disorder [Unknown]
  - Contusion [Unknown]
  - Asthenia [Unknown]
  - Decreased appetite [Unknown]
  - Blood pressure increased [Unknown]
  - Cough [Unknown]
  - Hypertension [Unknown]
  - Dyspnoea [Unknown]
  - Hypersensitivity [Unknown]
  - Tremor [Unknown]
  - Dizziness [Unknown]
  - Fatigue [Not Recovered/Not Resolved]

NARRATIVE: CASE EVENT DATE: 20210416
